FAERS Safety Report 21499114 (Version 1)
Quarter: 2022Q4

REPORT INFORMATION
  Report Type: Report from Study
  Country: US (occurrence: US)
  Receive Date: 20221024
  Receipt Date: 20221024
  Transmission Date: 20230112
  Serious: Yes (Hospitalization, Other)
  Sender: FDA-Public Use
  Company Number: US-BRISTOL-MYERS SQUIBB COMPANY-2022-124401

PATIENT
  Age: 65 Year
  Sex: Female
  Weight: 58.9 kg

DRUGS (2)
  1. POMALYST [Suspect]
     Active Substance: POMALIDOMIDE
     Indication: Plasma cell myeloma
     Route: 048
     Dates: start: 20220815, end: 202208
  2. POMALYST [Suspect]
     Active Substance: POMALIDOMIDE
     Route: 065
     Dates: start: 202209

REACTIONS (2)
  - COVID-19 [Unknown]
  - Cerebral thrombosis [Unknown]

NARRATIVE: CASE EVENT DATE: 20220801
